FAERS Safety Report 13181702 (Version 1)
Quarter: 2017Q1

REPORT INFORMATION
  Report Type: Report from Study
  Country: US (occurrence: US)
  Receive Date: 20170202
  Receipt Date: 20170202
  Transmission Date: 20170428
  Serious: Yes (Other)
  Sender: FDA-Public Use
  Company Number: US-ACTELION-A-NJ2017-149338

PATIENT
  Age: 14 Year
  Sex: Male

DRUGS (1)
  1. ZAVESCA [Suspect]
     Active Substance: MIGLUSTAT
     Indication: GAUCHER^S DISEASE
     Dosage: 200 MG, BID
     Route: 048
     Dates: start: 20140821

REACTIONS (3)
  - Seizure [Unknown]
  - Malaise [Unknown]
  - Vomiting [Unknown]
